FAERS Safety Report 6358983-9 (Version None)
Quarter: 2009Q3

REPORT INFORMATION
  Report Type: 
  Country: None (occurrence: None)
  Receive Date: 20090914
  Receipt Date: 20090901
  Transmission Date: 20100115
  Serious: Yes (Death)
  Sender: FDA-Public Use
  Company Number: 2009-02854

PATIENT
  Age: 66 Year
  Sex: Male
  Weight: 96 kg

DRUGS (5)
  1. VELCADE [Suspect]
     Indication: MULTIPLE MYELOMA
     Dosage: 2.8 MG, INTRAVENOUS
     Route: 042
     Dates: start: 20090605, end: 20090615
  2. DEXAMETHASONE TAB [Concomitant]
  3. ALLOPURINOL [Concomitant]
  4. METOCLOPRAMIDE [Concomitant]
  5. LANSOPRAZOLE [Concomitant]

REACTIONS (3)
  - DRUG INEFFECTIVE [None]
  - MALIGNANT NEOPLASM PROGRESSION [None]
  - MULTIPLE MYELOMA [None]
